FAERS Safety Report 23742509 (Version 1)
Quarter: 2024Q2

REPORT INFORMATION
  Report Type: Spontaneous
  Country: AU (occurrence: AU)
  Receive Date: 20240415
  Receipt Date: 20240415
  Transmission Date: 20240716
  Serious: Yes (Other)
  Sender: FDA-Public Use
  Company Number: AU-MYLANLABS-2024M1032670

PATIENT
  Age: 73 Year
  Sex: Male

DRUGS (3)
  1. IMATINIB [Suspect]
     Active Substance: IMATINIB
     Indication: Chronic myeloid leukaemia
     Dosage: UNK
     Route: 065
  2. PEGINTERFERON ALFA-2A [Concomitant]
     Active Substance: PEGINTERFERON ALFA-2A
     Indication: Chronic myeloid leukaemia
     Dosage: UNK
     Route: 065
  3. METHYLPREDNISOLONE [Concomitant]
     Active Substance: METHYLPREDNISOLONE
     Indication: Neuropathy peripheral
     Dosage: UNK
     Route: 065

REACTIONS (2)
  - Axonal neuropathy [Recovering/Resolving]
  - Neuropathy peripheral [Recovering/Resolving]

NARRATIVE: CASE EVENT DATE: 20200101
